FAERS Safety Report 21612486 (Version 2)
Quarter: 2022Q4

REPORT INFORMATION
  Report Type: Report from Study
  Country: CA (occurrence: CA)
  Receive Date: 20221118
  Receipt Date: 20221122
  Transmission Date: 20230113
  Serious: Yes (Other)
  Sender: FDA-Public Use
  Company Number: CA-002147023-NVSC2022CA255786

PATIENT
  Sex: Female

DRUGS (3)
  1. HYRIMOZ [Suspect]
     Active Substance: ADALIMUMAB-ADAZ
     Indication: Colitis ulcerative
     Dosage: 160 MG
     Route: 058
     Dates: start: 20221109
  2. HYRIMOZ [Suspect]
     Active Substance: ADALIMUMAB-ADAZ
     Dosage: 40 MG
     Route: 058
  3. PREDNISONE [Concomitant]
     Active Substance: PREDNISONE
     Indication: Product used for unknown indication
     Dosage: UNK
     Route: 065

REACTIONS (14)
  - Haematochezia [Unknown]
  - Abscess intestinal [Recovered/Resolved]
  - Fistula [Unknown]
  - Back pain [Unknown]
  - Proctalgia [Not Recovered/Not Resolved]
  - Malaise [Unknown]
  - Rectal discharge [Unknown]
  - Constipation [Unknown]
  - Pain [Unknown]
  - Abdominal pain [Unknown]
  - Injection site pain [Unknown]
  - Injection site haemorrhage [Unknown]
  - Injection site mass [Recovered/Resolved]
  - Drug ineffective [Unknown]
